FAERS Safety Report 18428653 (Version 1)
Quarter: 2020Q4

REPORT INFORMATION
  Report Type: Report from Study
  Country: CA (occurrence: CA)
  Receive Date: 20201026
  Receipt Date: 20201026
  Transmission Date: 20210114
  Serious: Yes (Other)
  Sender: FDA-Public Use
  Company Number: CA-JNJFOC-20200930452

PATIENT
  Age: 15 Year
  Sex: Female
  Weight: 50 kg

DRUGS (4)
  1. REMICADE [Suspect]
     Active Substance: INFLIXIMAB
     Route: 042
  2. REMICADE [Suspect]
     Active Substance: INFLIXIMAB
     Indication: JUVENILE IDIOPATHIC ARTHRITIS
     Dosage: LAST INFUSION ON 16-SEP-2020, INFUSION NUMBER 13
     Route: 042
     Dates: end: 20190927
  3. REMICADE [Suspect]
     Active Substance: INFLIXIMAB
     Route: 042
     Dates: start: 20200424
  4. DIPHENHYDRAMINE. [Concomitant]
     Active Substance: DIPHENHYDRAMINE
     Indication: PREMEDICATION
     Route: 042
     Dates: start: 20200916

REACTIONS (10)
  - Restlessness [Unknown]
  - Restless legs syndrome [Unknown]
  - Infusion related reaction [Unknown]
  - Dyspnoea [Unknown]
  - Product use in unapproved indication [Unknown]
  - Vomiting [Unknown]
  - Chest discomfort [Unknown]
  - Off label use [Unknown]
  - Retching [Unknown]
  - Nausea [Unknown]

NARRATIVE: CASE EVENT DATE: 2020
